FAERS Safety Report 9407646 (Version 5)
Quarter: 2014Q2

REPORT INFORMATION
  Report Type: Spontaneous
  Country: FR (occurrence: FR)
  Receive Date: 20130718
  Receipt Date: 20140612
  Transmission Date: 20141212
  Serious: Yes (Hospitalization)
  Sender: FDA-Public Use
  Company Number: FR-CELGENEUS-056-21880-13070030

PATIENT
  Age: 79 Year
  Sex: Female
  Weight: 52 kg

DRUGS (23)
  1. REVLIMID [Suspect]
     Indication: PLASMA CELL MYELOMA
     Route: 048
     Dates: start: 20130304, end: 20130627
  2. MLN9708/PLACEBO [Suspect]
     Indication: PLASMA CELL MYELOMA
     Dosage: 4 MILLIGRAM
     Route: 048
     Dates: start: 20130304, end: 20130627
  3. DEXAMETHASONE [Suspect]
     Indication: PLASMA CELL MYELOMA
     Route: 048
     Dates: start: 20130304, end: 20130627
  4. ACTISKENAN [Concomitant]
     Indication: PELVIC PAIN
     Route: 065
     Dates: start: 20130311
  5. ACTISKENAN [Concomitant]
     Route: 065
  6. DUROGESIC [Concomitant]
     Indication: PELVIC PAIN
     Route: 065
     Dates: start: 20130313
  7. RETACRIT [Concomitant]
     Indication: ANAEMIA
     Route: 065
     Dates: start: 20130417
  8. LOVENOX [Concomitant]
     Indication: THROMBOSIS
     Dosage: .6 MILLILITER
     Route: 065
     Dates: start: 20130417
  9. LOVENOX [Concomitant]
     Route: 065
  10. MATRIFEN [Concomitant]
     Indication: FRACTURE PAIN
     Route: 065
     Dates: start: 20130424, end: 20130531
  11. MATRIFEN [Concomitant]
     Route: 065
     Dates: start: 20130531
  12. PRIMPERAN [Concomitant]
     Indication: FEEDING DISORDER
     Route: 065
     Dates: start: 20130424
  13. VOGALEN LYOPHILISE [Concomitant]
     Indication: FEEDING DISORDER
     Route: 065
     Dates: start: 20130531
  14. VOGALEN LYOPHILISE [Concomitant]
     Indication: NAUSEA
  15. ZOMETA [Concomitant]
     Indication: BONE PAIN
     Route: 065
     Dates: start: 20130531
  16. ZOMETA [Concomitant]
     Indication: CHEST PAIN
  17. TRT BIPHOSPHONATE [Concomitant]
     Indication: BONE PAIN
     Route: 065
     Dates: start: 20130531
  18. OXYNORM [Concomitant]
     Indication: CHEST PAIN
     Route: 065
  19. OXYNORM [Concomitant]
     Route: 065
  20. LAROXYL [Concomitant]
     Indication: PAIN
     Route: 065
  21. OXYCONTIN [Concomitant]
     Indication: CHEST PAIN
     Dosage: 120 MILLIGRAM
     Route: 065
  22. MORPHINE [Concomitant]
     Indication: PRODUCT USED FOR UNKNOWN INDICATION
     Route: 065
  23. TRANSIPEG [Concomitant]
     Indication: CONSTIPATION
     Route: 065

REACTIONS (2)
  - Fracture pain [Not Recovered/Not Resolved]
  - Sternal fracture [Not Recovered/Not Resolved]
